FAERS Safety Report 18645460 (Version 1)
Quarter: 2020Q4

REPORT INFORMATION
  Report Type: Spontaneous
  Country: US (occurrence: US)
  Receive Date: 20201221
  Receipt Date: 20201221
  Transmission Date: 20210114
  Serious: No
  Sender: FDA-Public Use
  Company Number: US-GE HEALTHCARE LIFE SCIENCES-2020CSU006544

PATIENT
  Age: 42 Year
  Sex: Female

DRUGS (4)
  1. AMLODIPINE [Concomitant]
     Active Substance: AMLODIPINE BESYLATE
     Dosage: 10 MG, QD
  2. ADREVIEW [Suspect]
     Active Substance: IOBENGUANE I-123
     Indication: SINGLE PHOTON EMISSION COMPUTERISED TOMOGRAM
     Dosage: UNK, SINGLE
     Route: 042
  3. DOXAZOSIN [Concomitant]
     Active Substance: DOXAZOSIN MESYLATE
     Dosage: 1 MG, QD
  4. ADREVIEW [Suspect]
     Active Substance: IOBENGUANE I-123
     Indication: MEDIASTINAL MASS

REACTIONS (1)
  - False positive investigation result [Recovered/Resolved]
